FAERS Safety Report 20641397 (Version 1)
Quarter: 2022Q1

REPORT INFORMATION
  Report Type: Report from Study
  Country: US (occurrence: None)
  Receive Date: 20220328
  Receipt Date: 20220328
  Transmission Date: 20220423
  Serious: Yes (Other)
  Sender: FDA-Public Use
  Company Number: US-Merck Healthcare KGaA-9308026

PATIENT
  Sex: Female

DRUGS (7)
  1. REBIF [Suspect]
     Active Substance: INTERFERON BETA-1A
     Indication: Multiple sclerosis
     Dates: start: 20080227, end: 20090410
  2. REBIF [Suspect]
     Active Substance: INTERFERON BETA-1A
     Dates: start: 20090803, end: 20090805
  3. REBIF [Suspect]
     Active Substance: INTERFERON BETA-1A
     Dates: start: 20091106, end: 20110501
  4. REBIF [Suspect]
     Active Substance: INTERFERON BETA-1A
     Dates: start: 20191004, end: 20210915
  5. REBIF [Suspect]
     Active Substance: INTERFERON BETA-1A
     Route: 058
     Dates: start: 20220105
  6. LOVENOX [Concomitant]
     Active Substance: ENOXAPARIN SODIUM
     Indication: Product used for unknown indication
     Dates: start: 2012
  7. COUMADIN [Concomitant]
     Active Substance: WARFARIN SODIUM
     Indication: Product used for unknown indication
     Dates: start: 2012

REACTIONS (1)
  - Mitral valve replacement [Unknown]
